FAERS Safety Report 7478943-4 (Version None)
Quarter: 2011Q2

REPORT INFORMATION
  Report Type: 
  Country: None (occurrence: None)
  Receive Date: 20110513
  Receipt Date: 20110503
  Transmission Date: 20111010
  Serious: Yes (Other)
  Sender: FDA-Public Use
  Company Number: US-BAYER-2011-020250

PATIENT
  Age: 24 Year
  Sex: Female
  Weight: 57.143 kg

DRUGS (1)
  1. MIRENA [Suspect]
     Indication: CONTRACEPTION
     Dosage: 20 MCG/24HR, CONT
     Route: 015
     Dates: start: 20110120, end: 20110120

REACTIONS (3)
  - UTERINE PERFORATION [None]
  - PAIN [None]
  - DEVICE EXPULSION [None]
